FAERS Safety Report 7463719-4 (Version None)
Quarter: 2011Q2

REPORT INFORMATION
  Report Type: 
  Country: None (occurrence: None)
  Receive Date: 20110506
  Receipt Date: 20110325
  Transmission Date: 20111010
  Serious: Yes (Hospitalization, Other)
  Sender: FDA-Public Use
  Company Number: US-BAYER-201038806NA

PATIENT
  Age: 19 Year
  Sex: Female
  Weight: 86.168 kg

DRUGS (4)
  1. ALBUTEROL [Concomitant]
  2. YAZ [Suspect]
     Indication: CONTRACEPTION
     Route: 048
     Dates: start: 20060101, end: 20091201
  3. YAZ [Suspect]
     Indication: PREMENSTRUAL SYNDROME
     Dosage: UNK
     Dates: start: 20060101, end: 20090101
  4. YAZ [Suspect]

REACTIONS (7)
  - ABDOMINAL PAIN [None]
  - DIARRHOEA [None]
  - VOMITING [None]
  - NAUSEA [None]
  - HEPATOBILIARY SCAN ABNORMAL [None]
  - ABDOMINAL PAIN UPPER [None]
  - CHOLECYSTITIS [None]
